FAERS Safety Report 10708021 (Version 1)
Quarter: 2015Q1

REPORT INFORMATION
  Report Type: Spontaneous
  Country: US (occurrence: US)
  Receive Date: 20150113
  Receipt Date: 20150113
  Transmission Date: 20150721
  Serious: No
  Sender: FDA-Public Use
  Company Number: US-PFIZER INC-2015008880

PATIENT
  Age: 60 Year
  Sex: Female
  Weight: 67.12 kg

DRUGS (1)
  1. GABAPENTIN. [Suspect]
     Active Substance: GABAPENTIN
     Indication: SJOGREN^S SYNDROME
     Dosage: UNK

REACTIONS (1)
  - Depression [Unknown]
